FAERS Safety Report 6452045-8 (Version None)
Quarter: 2009Q4

REPORT INFORMATION
  Report Type: 
  Country: None (occurrence: None)
  Receive Date: 20091123
  Receipt Date: 20091012
  Transmission Date: 20100525
  Serious: Yes (Other)
  Sender: FDA-Public Use
  Company Number: US-AMGEN-US368972

PATIENT
  Sex: Female

DRUGS (1)
  1. ENBREL [Suspect]
     Indication: PSORIASIS
     Route: 058
     Dates: start: 20030101

REACTIONS (5)
  - BACTERAEMIA [None]
  - DIARRHOEA [None]
  - INCORRECT STORAGE OF DRUG [None]
  - JAW DISORDER [None]
  - TOOTH LOSS [None]
